FAERS Safety Report 10436125 (Version 1)
Quarter: 2014Q3

REPORT INFORMATION
  Report Type: Spontaneous
  Country: US (occurrence: None)
  Receive Date: 20140904
  Receipt Date: 20140904
  Transmission Date: 20150326
  Serious: Yes (Hospitalization)
  Sender: FDA-Public Use
  Company Number: 2014-US-010851

PATIENT
  Age: 58 Year
  Sex: Male
  Weight: 102 kg

DRUGS (3)
  1. XYREM [Suspect]
     Active Substance: SODIUM OXYBATE
     Indication: SOMNOLENCE
     Route: 048
     Dates: start: 200702, end: 2007
  2. NUVIGIL [Concomitant]
     Active Substance: ARMODAFINIL
  3. MULTIVITAMIN (VITAMINS NOS) [Concomitant]
     Active Substance: VITAMINS

REACTIONS (5)
  - Off label use [None]
  - Intraocular pressure increased [None]
  - Fatigue [None]
  - Disturbance in attention [None]
  - Myocardial infarction [None]

NARRATIVE: CASE EVENT DATE: 200704
